FAERS Safety Report 9922708 (Version 1)
Quarter: 2014Q1

REPORT INFORMATION
  Report Type: Spontaneous
  Country: FR (occurrence: FR)
  Receive Date: 20140225
  Receipt Date: 20140225
  Transmission Date: 20141002
  Serious: Yes (Hospitalization)
  Sender: FDA-Public Use
  Company Number: FR-ASTRAZENECA-2014SE11696

PATIENT
  Age: 30657 Day
  Sex: Female

DRUGS (5)
  1. BRILIQUE [Suspect]
     Route: 048
     Dates: start: 20131226, end: 20131230
  2. ASPIRINE [Concomitant]
     Route: 048
     Dates: start: 20131226
  3. ATENOLOL [Concomitant]
     Route: 048
     Dates: start: 20131226
  4. ATORVASTATINE [Concomitant]
     Route: 048
     Dates: start: 20131226
  5. CALCIPARINE [Concomitant]
     Dosage: 75000 IU/0.3 ML TWICE A DAY
     Route: 058
     Dates: start: 20131226, end: 20131230

REACTIONS (3)
  - Urinary tract infection [Recovered/Resolved]
  - Confusional state [Recovered/Resolved]
  - Dyspnoea [Unknown]
